FAERS Safety Report 19091110 (Version 2)
Quarter: 2021Q2

REPORT INFORMATION
  Report Type: Other
  Country: CA (occurrence: CA)
  Receive Date: 20210405
  Receipt Date: 20210511
  Transmission Date: 20210717
  Serious: Yes (Hospitalization)
  Sender: FDA-Public Use
  Company Number: CA-CELLTRION INC.-2021CA004339

PATIENT

DRUGS (12)
  1. RITUXIMAB (UNKNOWN) [Suspect]
     Active Substance: RITUXIMAB
     Indication: DERMATOMYOSITIS
     Dosage: UNK
     Route: 042
  2. METHYLPREDNISOLONE SODIUM SUCCINATE. [Concomitant]
     Active Substance: METHYLPREDNISOLONE SODIUM SUCCINATE
     Dosage: 100.0 MILLIGRAM
     Route: 042
  3. PREDNISONE. [Concomitant]
     Active Substance: PREDNISONE
     Indication: INTERSTITIAL LUNG DISEASE
     Dosage: 1 EVERY 1 DAYS
     Route: 065
  4. REACTINE [CETIRIZINE HYDROCHLORIDE] [Concomitant]
     Active Substance: CETIRIZINE HYDROCHLORIDE
     Indication: PRODUCT USED FOR UNKNOWN INDICATION
  5. RITUXIMAB (UNKNOWN) [Suspect]
     Active Substance: RITUXIMAB
     Indication: INTERSTITIAL LUNG DISEASE
     Dosage: 1000.0 MILLIGRAM, 1 EVERY 15 DAYS
     Route: 042
  6. MYCOPHENOLATE MOFETIL. [Suspect]
     Active Substance: MYCOPHENOLATE MOFETIL
     Indication: INTERSTITIAL LUNG DISEASE
     Dosage: 500.0 MILLIGRAM, 2 EVERY 1 DAYS
     Route: 065
  7. PREDNISONE. [Concomitant]
     Active Substance: PREDNISONE
     Indication: DERMATOMYOSITIS
  8. TYLENOL [Concomitant]
     Active Substance: ACETAMINOPHEN
     Dosage: 650.0 MILLIGRAM
     Route: 048
  9. BENADRYL [Concomitant]
     Active Substance: DIPHENHYDRAMINE HYDROCHLORIDE
     Indication: PRODUCT USED FOR UNKNOWN INDICATION
     Dosage: 50.0 MILLIGRAM
     Route: 048
  10. SULFATRIM [Concomitant]
     Active Substance: SULFAMETHOXAZOLE\TRIMETHOPRIM
     Indication: PRODUCT USED FOR UNKNOWN INDICATION
  11. MYCOPHENOLATE MOFETIL. [Suspect]
     Active Substance: MYCOPHENOLATE MOFETIL
     Indication: DERMATOMYOSITIS
  12. PANTOPRAZOLE MAGNESIUM [Concomitant]
     Active Substance: PANTOPRAZOLE MAGNESIUM
     Indication: PRODUCT USED FOR UNKNOWN INDICATION

REACTIONS (8)
  - Pneumonia [Not Recovered/Not Resolved]
  - Pyrexia [Not Recovered/Not Resolved]
  - Chills [Not Recovered/Not Resolved]
  - Intentional product use issue [Not Recovered/Not Resolved]
  - Influenza [Not Recovered/Not Resolved]
  - Off label use [Not Recovered/Not Resolved]
  - Dysphonia [Not Recovered/Not Resolved]
  - Cystitis [Not Recovered/Not Resolved]
